FAERS Safety Report 23356129 (Version 1)
Quarter: 2024Q1

REPORT INFORMATION
  Report Type: Spontaneous
  Country: CN (occurrence: None)
  Receive Date: 20240102
  Receipt Date: 20240102
  Transmission Date: 20240410
  Serious: Yes (Hospitalization)
  Sender: FDA-Public Use
  Company Number: CN-ROCHE-3482333

PATIENT
  Age: 49 Year
  Sex: Female
  Weight: 59 kg

DRUGS (4)
  1. PACLITAXEL [Suspect]
     Active Substance: PACLITAXEL
     Indication: Ovarian neoplasm
     Route: 041
     Dates: start: 20231113
  2. CISPLATIN [Suspect]
     Active Substance: CISPLATIN
     Indication: Ovarian neoplasm
     Route: 041
     Dates: start: 20231113
  3. AVASTIN [Suspect]
     Active Substance: BEVACIZUMAB
     Indication: Ovarian neoplasm
     Route: 041
     Dates: start: 20231113
  4. SODIUM CHLORIDE [Concomitant]
     Active Substance: SODIUM CHLORIDE

REACTIONS (2)
  - Granulocyte count decreased [Unknown]
  - White blood cell count decreased [Unknown]

NARRATIVE: CASE EVENT DATE: 20231207
